FAERS Safety Report 13701423 (Version 1)
Quarter: 2017Q2

REPORT INFORMATION
  Report Type: Spontaneous
  Country: US (occurrence: US)
  Receive Date: 20170628
  Receipt Date: 20170628
  Transmission Date: 20170830
  Serious: No
  Sender: FDA-Public Use
  Company Number: None

PATIENT
  Age: 42 Year
  Sex: Female
  Weight: 51.3 kg

DRUGS (1)
  1. BUPROPION HYDROCHLORIDE SR [Suspect]
     Active Substance: BUPROPION HYDROCHLORIDE
     Indication: DEPRESSION
     Dosage: ?          OTHER STRENGTH:MG;QUANTITY:1 TABLET(S);?
     Route: 048
     Dates: start: 20170609, end: 20170627

REACTIONS (9)
  - Memory impairment [None]
  - Middle insomnia [None]
  - Product substitution issue [None]
  - Impaired work ability [None]
  - Irritability [None]
  - Drug ineffective [None]
  - Headache [None]
  - Indifference [None]
  - Apathy [None]

NARRATIVE: CASE EVENT DATE: 20170609
